FAERS Safety Report 26036311 (Version 2)
Quarter: 2025Q4

REPORT INFORMATION
  Report Type: Spontaneous
  Country: EU (occurrence: EU)
  Receive Date: 20251112
  Receipt Date: 20251118
  Transmission Date: 20260118
  Serious: Yes (Other)
  Sender: PFIZER
  Company Number: EU-PFM-2025-05298

PATIENT
  Age: 59 Year
  Sex: Male

DRUGS (3)
  1. BINIMETINIB [Suspect]
     Active Substance: BINIMETINIB
     Indication: Malignant melanoma
     Dosage: 15 MG 3-0-3
     Dates: start: 202403, end: 202406
  2. RIBOCICLIB [Suspect]
     Active Substance: RIBOCICLIB
     Indication: Malignant melanoma
     Dosage: 200 MG 1-0-0
     Dates: start: 202403, end: 202406
  3. DUPILUMAB [Concomitant]
     Active Substance: DUPILUMAB
     Indication: Malignant melanoma stage III
     Dosage: 300 MG EVERY TWO WEEKS
     Dates: start: 202309, end: 202404

REACTIONS (4)
  - Autoimmune colitis [Recovered/Resolved]
  - Autoimmune hepatitis [Unknown]
  - Product use issue [Unknown]
  - Off label use [Unknown]

NARRATIVE: CASE EVENT DATE: 20240301
